FAERS Safety Report 9119957 (Version 1)
Quarter: 2013Q1

REPORT INFORMATION
  Report Type: Spontaneous
  Country: FR (occurrence: FR)
  Receive Date: 20130226
  Receipt Date: 20130226
  Transmission Date: 20140127
  Serious: Yes (Hospitalization)
  Sender: FDA-Public Use
  Company Number: FR-BRISTOL-MYERS SQUIBB COMPANY-17398421

PATIENT
  Sex: 0

DRUGS (1)
  1. REYATAZ CAPS 300 MG [Suspect]

REACTIONS (1)
  - Gastric disorder [Unknown]
